FAERS Safety Report 5514081-5 (Version None)
Quarter: 2007Q4

REPORT INFORMATION
  Report Type: 
  Country: None (occurrence: None)
  Receive Date: 20071113
  Receipt Date: 20071102
  Transmission Date: 20080405
  Serious: Yes (Hospitalization, Other)
  Sender: FDA-Public Use
  Company Number: JP-AVENTIS-200720155GDDC

PATIENT
  Age: 71 Year
  Sex: Female

DRUGS (12)
  1. LEVAQUIN [Suspect]
     Dosage: DOSE: UNK
  2. LASIX [Suspect]
     Dosage: DOSE: UNK
  3. TEMODAR [Suspect]
     Dosage: DOSE: UNK
  4. ASPIRIN [Suspect]
     Dosage: DOSE: UNK
  5. DECADRON [Suspect]
     Dosage: DOSE: UNK
  6. DIGOXIN [Suspect]
     Dosage: DOSE: UNK
  7. DUONEB [Suspect]
     Dosage: DOSE: UNK
  8. MUCOMYST [Suspect]
     Dosage: DOSE: UNK
  9. COLACE [Concomitant]
     Dosage: DOSE: UNK
  10. LIPITOR [Concomitant]
     Dosage: DOSE: UNK
  11. LOVENOX [Concomitant]
     Dosage: DOSE: UNK
  12. METOPROLOL TARTRATE [Concomitant]
     Dosage: DOSE: UNK

REACTIONS (3)
  - HALLUCINATION [None]
  - TOXIC ENCEPHALOPATHY [None]
  - VISUAL DISTURBANCE [None]
